FAERS Safety Report 13497519 (Version 4)
Quarter: 2017Q4

REPORT INFORMATION
  Report Type: Spontaneous
  Country: HU (occurrence: HU)
  Receive Date: 20170428
  Receipt Date: 20171020
  Transmission Date: 20180320
  Serious: Yes (Death, Life-Threatening, Hospitalization, Other)
  Sender: FDA-Public Use
  Company Number: HU-B.I. PHARMACEUTICALS,INC./RIDGEFIELD-2017-BI-023736

PATIENT
  Age: 67 Year
  Sex: Female

DRUGS (5)
  1. PROPANOLOL [Concomitant]
     Active Substance: PROPRANOLOL HYDROCHLORIDE
     Indication: PRODUCT USED FOR UNKNOWN INDICATION
     Route: 065
  2. LITICARB [Concomitant]
     Active Substance: LITHIUM CARBONATE
     Indication: HYPERTHYROIDISM
     Route: 065
     Dates: start: 201704
  3. NOACID [Concomitant]
     Active Substance: ALUMINUM HYDROXIDE
     Indication: PRODUCT USED FOR UNKNOWN INDICATION
     Route: 065
  4. PRADAXA [Suspect]
     Active Substance: DABIGATRAN ETEXILATE MESYLATE
     Indication: ATRIAL FIBRILLATION
     Route: 048
  5. METOTHYRIN [Concomitant]
     Indication: HYPERTHYROIDISM
     Route: 065

REACTIONS (4)
  - Haemorrhage intracranial [Fatal]
  - Cerebral haemorrhage [Fatal]
  - Altered state of consciousness [Not Recovered/Not Resolved]
  - Subdural haematoma [Fatal]

NARRATIVE: CASE EVENT DATE: 20170425
